FAERS Safety Report 15966891 (Version 2)
Quarter: 2019Q1

REPORT INFORMATION
  Report Type: Spontaneous
  Country: JP (occurrence: JP)
  Receive Date: 20190215
  Receipt Date: 20190225
  Transmission Date: 20190418
  Serious: Yes (Hospitalization, Other)
  Sender: FDA-Public Use
  Company Number: JP-ASTRAZENECA-2018SF58403

PATIENT
  Age: 72 Year
  Sex: Male
  Weight: 56 kg

DRUGS (5)
  1. SUCRALFATE. [Concomitant]
     Active Substance: SUCRALFATE
     Indication: EMPHYSEMA
     Route: 048
     Dates: start: 20180905, end: 20181024
  2. CARBOCISTEINE [Concomitant]
     Active Substance: CARBOCYSTEINE
     Indication: EMPHYSEMA
     Route: 048
     Dates: start: 20180712
  3. IMFINZI [Suspect]
     Active Substance: DURVALUMAB
     Indication: NON-SMALL CELL LUNG CANCER
     Route: 041
     Dates: start: 20181012, end: 20181109
  4. IMFINZI [Suspect]
     Active Substance: DURVALUMAB
     Indication: NON-SMALL CELL LUNG CANCER
     Route: 041
     Dates: start: 20181017
  5. DEXTROMETHORPHAN HYDROBROMIDE. [Concomitant]
     Active Substance: DEXTROMETHORPHAN HYDROBROMIDE
     Indication: EMPHYSEMA
     Route: 048
     Dates: start: 20180930, end: 20181108

REACTIONS (5)
  - Diarrhoea [Recovering/Resolving]
  - Interstitial lung disease [Not Recovered/Not Resolved]
  - Pleural effusion [Unknown]
  - Lung disorder [Recovering/Resolving]
  - Radiation pneumonitis [Recovering/Resolving]

NARRATIVE: CASE EVENT DATE: 20181015
